FAERS Safety Report 17929326 (Version 1)
Quarter: 2020Q2

REPORT INFORMATION
  Report Type: Spontaneous
  Country: US (occurrence: US)
  Receive Date: 20200622
  Receipt Date: 20200622
  Transmission Date: 20200714
  Serious: Yes (Hospitalization)
  Sender: FDA-Public Use
  Company Number: None

PATIENT
  Age: 59 Year
  Sex: Male

DRUGS (11)
  1. NIVOLUMAB [Concomitant]
     Active Substance: NIVOLUMAB
  2. ACETAMINOPHEM [Concomitant]
  3. NO DRUG NAME [Concomitant]
  4. SIMVASTATIN. [Concomitant]
     Active Substance: SIMVASTATIN
  5. LORATADINE. [Concomitant]
     Active Substance: LORATADINE
  6. LISINOPRIL. [Concomitant]
     Active Substance: LISINOPRIL
  7. LEVOTHYROXINE. [Concomitant]
     Active Substance: LEVOTHYROXINE
  8. DOCUSATE-SENNA [Concomitant]
  9. METOPROLOL. [Concomitant]
     Active Substance: METOPROLOL
  10. IBUPROFEN. [Concomitant]
     Active Substance: IBUPROFEN
  11. BEVACIZUMAB 10MG/KG [Suspect]
     Active Substance: BEVACIZUMAB
     Indication: GLIOBLASTOMA MULTIFORME
     Route: 042
     Dates: start: 20191114, end: 20200505

REACTIONS (5)
  - Platelet count decreased [None]
  - Hypoaesthesia [None]
  - Transient ischaemic attack [None]
  - Partial seizures [None]
  - Asthenia [None]

NARRATIVE: CASE EVENT DATE: 20200613
